FAERS Safety Report 20749382 (Version 2)
Quarter: 2023Q1

REPORT INFORMATION
  Report Type: Report from Study
  Country: US (occurrence: US)
  Receive Date: 20220426
  Receipt Date: 20230324
  Transmission Date: 20230418
  Serious: No
  Sender: FDA-Public Use
  Company Number: US-NOVARTISTESTPH-NVSC2022US095178

PATIENT
  Sex: Female
  Weight: 52.16 kg

DRUGS (1)
  1. COSENTYX [Suspect]
     Active Substance: SECUKINUMAB
     Indication: Psoriasis
     Dosage: QMO (EVERY 4 WEEKS)
     Route: 058
     Dates: start: 20210728

REACTIONS (2)
  - Maternal exposure during pregnancy [Unknown]
  - Psoriasis [Unknown]
